FAERS Safety Report 11781407 (Version 1)
Quarter: 2015Q4

REPORT INFORMATION
  Report Type: Spontaneous
  Country: US (occurrence: US)
  Receive Date: 20151126
  Receipt Date: 20151126
  Transmission Date: 20160305
  Serious: No
  Sender: FDA-Public Use
  Company Number: US-JNJFOC-20151110802

PATIENT
  Age: 44 Year
  Sex: Female
  Weight: 63.5 kg

DRUGS (2)
  1. WOMENS ROGAINE UNSCENTED [Suspect]
     Active Substance: MINOXIDIL
     Indication: ALOPECIA
     Dosage: 1/2 A CAPFUL ONCE DAILY, TOTAL OF AROUND 3 CAPFULS ONCE DAILY
     Route: 061
  2. WOMENS ROGAINE UNSCENTED [Suspect]
     Active Substance: MINOXIDIL
     Route: 061

REACTIONS (4)
  - Medication residue present [Recovering/Resolving]
  - Drug administered at inappropriate site [Recovering/Resolving]
  - Incorrect dose administered [Recovering/Resolving]
  - Acne [Recovering/Resolving]
